FAERS Safety Report 8916917 (Version 1)
Quarter: 2012Q4

REPORT INFORMATION
  Report Type: 
  Country: DE (occurrence: DE)
  Receive Date: 20121120
  Receipt Date: 20121120
  Transmission Date: 20130627
  Serious: Yes (Life-Threatening)
  Sender: FDA-Public Use
  Company Number: DE-ROCHE-1156891

PATIENT
  Sex: Male
  Weight: 83 kg

DRUGS (11)
  1. TORASEMIDE [Suspect]
     Indication: RENAL IMPAIRMENT
     Route: 048
     Dates: start: 20090125
  2. ARCOXIA [Suspect]
     Indication: PAIN IN EXTREMITY
     Route: 048
     Dates: start: 20090123
  3. GABAPENTIN [Suspect]
     Indication: PERIPHERAL ARTERIAL OCCLUSIVE DISEASE
     Route: 048
     Dates: start: 20090103, end: 20090130
  4. BENZBROMARONE [Suspect]
     Indication: GOUT
     Route: 048
     Dates: start: 20090103, end: 20090130
  5. BELOC-ZOK [Suspect]
     Indication: HYPERTENSION
     Route: 048
     Dates: start: 1995, end: 20090130
  6. BENAZEPRIL [Suspect]
     Indication: HYPERTENSION
     Dosage: 20 mg benazepril and 25 mg HCT
     Route: 048
     Dates: start: 200805, end: 20090130
  7. DIGITOXIN [Suspect]
     Indication: ATRIAL FIBRILLATION
     Route: 048
     Dates: start: 200704
  8. VEROSPIRON [Suspect]
     Indication: OEDEMA PERIPHERAL
     Route: 048
     Dates: start: 200812, end: 20090129
  9. XIPAMIDE [Suspect]
     Indication: HYPERTENSION
     Route: 048
     Dates: start: 200812, end: 20090129
  10. FALITHROM [Concomitant]
     Indication: ATRIAL FIBRILLATION
     Route: 048
     Dates: start: 1996, end: 20090130
  11. LOVASTATIN [Concomitant]
     Indication: DYSLIPIDAEMIA
     Route: 065
     Dates: start: 200704, end: 20090129

REACTIONS (1)
  - Renal failure acute [Unknown]
